FAERS Safety Report 23333133 (Version 2)
Quarter: 2024Q1

REPORT INFORMATION
  Report Type: Report from Study
  Country: US (occurrence: US)
  Receive Date: 20231222
  Receipt Date: 20240109
  Transmission Date: 20240410
  Serious: Yes (Other)
  Sender: FDA-Public Use
  Company Number: US-MYLANLABS-2021M1030856

PATIENT
  Sex: Female

DRUGS (2)
  1. GLATIRAMER ACETATE [Suspect]
     Active Substance: GLATIRAMER ACETATE
     Indication: Multiple sclerosis
     Dosage: 40 MILLIGRAM, 3XW
     Route: 058
  2. GLATIRAMER ACETATE [Suspect]
     Active Substance: GLATIRAMER ACETATE
     Indication: Relapsing-remitting multiple sclerosis
     Dosage: UNK
     Route: 058

REACTIONS (10)
  - Multiple sclerosis [Unknown]
  - Throat tightness [Unknown]
  - JC polyomavirus test positive [Unknown]
  - Palpitations [Unknown]
  - Nervousness [Unknown]
  - Injection site mass [Unknown]
  - Injection site pain [Unknown]
  - Dyspnoea [Unknown]
  - Urticaria [Unknown]
  - Anxiety [Unknown]
